FAERS Safety Report 19091963 (Version 1)
Quarter: 2021Q2

REPORT INFORMATION
  Report Type: Spontaneous
  Country: NL (occurrence: NL)
  Receive Date: 20210405
  Receipt Date: 20210405
  Transmission Date: 20210717
  Serious: Yes (Other)
  Sender: FDA-Public Use
  Company Number: NL-MYLANLABS-2021M1019603

PATIENT
  Age: 51 Year
  Sex: Female
  Weight: 62 kg

DRUGS (4)
  1. EFEXOR [Suspect]
     Active Substance: VENLAFAXINE HYDROCHLORIDE
     Indication: DEPRESSION
     Dosage: 2 TIMES PER DAY 150
     Dates: start: 2005
  2. METFORMINE                         /00082701/ [Concomitant]
     Active Substance: METFORMIN HYDROCHLORIDE
     Indication: DIABETES MELLITUS
     Dosage: MODIFIED?RELEASE
  3. CLOZAPINE. [Suspect]
     Active Substance: CLOZAPINE
     Indication: SCHIZOPHRENIA
     Dosage: 1X PER DAY 6 PIECES
     Dates: start: 1993
  4. ABILIFY [Suspect]
     Active Substance: ARIPIPRAZOLE
     Indication: SCHIZOPHRENIA
     Dosage: 2 TIMES A DAY 20 MG
     Dates: start: 2009

REACTIONS (8)
  - Diabetes mellitus [Recovered/Resolved]
  - Weight increased [Recovered/Resolved]
  - Fear [Not Recovered/Not Resolved]
  - Psychotic symptom [Not Recovered/Not Resolved]
  - Depressive symptom [Not Recovered/Not Resolved]
  - Hallucination [Not Recovered/Not Resolved]
  - Depersonalisation/derealisation disorder [Not Recovered/Not Resolved]
  - Suspiciousness [Not Recovered/Not Resolved]

NARRATIVE: CASE EVENT DATE: 2010
